FAERS Safety Report 14651716 (Version 8)
Quarter: 2019Q4

REPORT INFORMATION
  Report Type: Report from Study
  Country: US (occurrence: US)
  Receive Date: 20180317
  Receipt Date: 20191209
  Transmission Date: 20200122
  Serious: No
  Sender: FDA-Public Use
  Company Number: PHEH2018US010526

PATIENT
  Age: 41 Year
  Sex: Female

DRUGS (1)
  1. GILENYA [Suspect]
     Active Substance: FINGOLIMOD HYDROCHLORIDE
     Indication: MULTIPLE SCLEROSIS
     Dosage: 0.5 MG, QD
     Route: 048
     Dates: start: 20180301

REACTIONS (22)
  - Asthenia [Recovered/Resolved]
  - Muscle tightness [Unknown]
  - Depression [Unknown]
  - Heart rate decreased [Recovered/Resolved]
  - Back pain [Unknown]
  - Cough [Recovered/Resolved]
  - Anxiety [Unknown]
  - Gait disturbance [Unknown]
  - Nervousness [Recovered/Resolved]
  - Somnolence [Recovered/Resolved]
  - Nerve injury [Unknown]
  - Weight loss poor [Unknown]
  - Benign neoplasm of thyroid gland [Unknown]
  - Alopecia [Unknown]
  - Dyspnoea [Recovered/Resolved]
  - Sinusitis [Recovered/Resolved]
  - Gluten sensitivity [Unknown]
  - Heart rate decreased [Recovering/Resolving]
  - Fatigue [Unknown]
  - Ligament sprain [Unknown]
  - Pain [Unknown]
  - Fatigue [Recovered/Resolved]

NARRATIVE: CASE EVENT DATE: 20180301
